FAERS Safety Report 14321999 (Version 4)
Quarter: 2018Q1

REPORT INFORMATION
  Report Type: Report from Study
  Country: NL (occurrence: NL)
  Receive Date: 20171225
  Receipt Date: 20180329
  Transmission Date: 20180509
  Serious: Yes (Hospitalization)
  Sender: FDA-Public Use
  Company Number: NL-ROCHE-2041043

PATIENT

DRUGS (6)
  1. OXALIPLATIN. [Suspect]
     Active Substance: OXALIPLATIN
     Indication: COLORECTAL CANCER
     Dosage: MOST RECENT DOSE PRIOR TO ADVERSE EVENT 13/NOV/2017
     Route: 065
     Dates: start: 20170524
  2. LEUCOVORIN CALCIUM. [Suspect]
     Active Substance: LEUCOVORIN CALCIUM
     Indication: COLORECTAL CANCER
     Dosage: MOST RECENT DOSE PRIOR TO ADVERSE EVENT 13/NOV/2017
     Route: 065
     Dates: start: 20170524
  3. IRINOTECAN [Suspect]
     Active Substance: IRINOTECAN
     Indication: COLORECTAL CANCER
     Dosage: MOST RECENT DOSE PRIOR TO ADVERSE EVENT 13/NOV/2017
     Route: 065
     Dates: start: 20170524
  4. 5-FU [Suspect]
     Active Substance: FLUOROURACIL
     Indication: COLORECTAL CANCER
     Dosage: MOST RECENT DOSE PRIOR TO ADVERSE EVENT 13/NOV/2017
     Route: 065
     Dates: start: 20170524
  5. PEGYLATED LIPOSOMAL IRINOTECAN [Suspect]
     Active Substance: IRINOTECAN HYDROCHLORIDE
     Indication: COLORECTAL CANCER
     Dosage: MOST RECENT DOSE PRIOR TO ADVERSE EVENT 13/NOV/2017
     Route: 065
     Dates: start: 20170524
  6. BEVACIZUMAB. [Suspect]
     Active Substance: BEVACIZUMAB
     Indication: COLORECTAL CANCER
     Dosage: MOST RECENT DOSE PRIOR TO ADVERSE EVENT 13/NOV/2017
     Route: 065
     Dates: start: 20170524

REACTIONS (1)
  - Diplopia [Recovering/Resolving]

NARRATIVE: CASE EVENT DATE: 20171121
